FAERS Safety Report 8530859-8 (Version None)
Quarter: 2012Q3

REPORT INFORMATION
  Report Type: 
  Country: None (occurrence: None)
  Receive Date: 20120723
  Receipt Date: 20120711
  Transmission Date: 20120928
  Serious: Yes (Other)
  Sender: FDA-Public Use
  Company Number: DE-ROCHE-1088944

PATIENT
  Sex: Female

DRUGS (4)
  1. PACLITAXEL [Concomitant]
     Indication: ADENOCARCINOMA
     Dates: start: 20100701, end: 20100901
  2. AVASTIN [Suspect]
     Dates: start: 20100901, end: 20120501
  3. AVASTIN [Suspect]
     Indication: ADENOCARCINOMA
     Dates: start: 20100701, end: 20100901
  4. CARBOPLATIN [Concomitant]
     Indication: ADENOCARCINOMA
     Dates: start: 20100701, end: 20100901

REACTIONS (1)
  - DISEASE PROGRESSION [None]
